FAERS Safety Report 21906614 (Version 3)
Quarter: 2024Q3

REPORT INFORMATION
  Report Type: Spontaneous
  Country: BR (occurrence: BR)
  Receive Date: 20230125
  Receipt Date: 20240808
  Transmission Date: 20241017
  Serious: Yes (Hospitalization, Other)
  Sender: CELLTRION
  Company Number: BR-CELLTRION INC.-2023BR001418

PATIENT

DRUGS (2)
  1. INFLIXIMAB [Suspect]
     Active Substance: INFLIXIMAB
     Indication: Crohn^s disease
     Dosage: 4 AMPOULES EVERY 8 WEEKS
     Route: 042
  2. TOPIRAMATE [Concomitant]
     Active Substance: TOPIRAMATE
     Indication: Migraine
     Dosage: 2 PILLS A DAY (START: 3 YEARS)
     Route: 048

REACTIONS (3)
  - Crohn^s disease [Recovered/Resolved]
  - Disease complication [Recovering/Resolving]
  - Intentional dose omission [Unknown]
